FAERS Safety Report 6370652-8 (Version None)
Quarter: 2009Q3

REPORT INFORMATION
  Report Type: 
  Country: None (occurrence: None)
  Receive Date: 20090921
  Receipt Date: 20090921
  Transmission Date: 20100115
  Serious: Yes (Other)
  Sender: FDA-Public Use
  Company Number: None

PATIENT
  Age: 3 Month
  Sex: Female
  Weight: 65.7716 kg

DRUGS (1)
  1. INVEGA [Suspect]
     Indication: SCHIZOPHRENIA
     Dosage: 9M ONCE AT NITE UNK
     Dates: start: 20090630, end: 20090630

REACTIONS (2)
  - BREAST DISCHARGE [None]
  - MENSTRUAL DISORDER [None]
